FAERS Safety Report 23674850 (Version 1)
Quarter: 2024Q1

REPORT INFORMATION
  Report Type: Spontaneous
  Country: CL (occurrence: CL)
  Receive Date: 20240326
  Receipt Date: 20240326
  Transmission Date: 20240410
  Serious: Yes (Other)
  Sender: FDA-Public Use
  Company Number: CL-009507513-2403CHL008199

PATIENT
  Age: 43 Year
  Sex: Female

DRUGS (1)
  1. PEMBROLIZUMAB [Suspect]
     Active Substance: PEMBROLIZUMAB
     Indication: Triple negative breast cancer

REACTIONS (6)
  - Febrile neutropenia [Unknown]
  - Fatigue [Unknown]
  - Nausea [Unknown]
  - Anaemia [Unknown]
  - Arthralgia [Unknown]
  - Diarrhoea [Unknown]
